FAERS Safety Report 10444197 (Version 2)
Quarter: 2015Q1

REPORT INFORMATION
  Report Type: Spontaneous
  Country: US (occurrence: US)
  Receive Date: 20140910
  Receipt Date: 20150123
  Transmission Date: 20150720
  Serious: Yes (Hospitalization, Other)
  Sender: FDA-Public Use
  Company Number: US-009507513-1409USA004465

PATIENT
  Sex: Female
  Weight: 92.63 kg

DRUGS (1)
  1. JANUMET [Suspect]
     Active Substance: METFORMIN HYDROCHLORIDE\SITAGLIPTIN PHOSPHATE
     Indication: TYPE 2 DIABETES MELLITUS
     Dosage: 50 MG/500 MG, BID
     Route: 048
     Dates: start: 20080501, end: 201207

REACTIONS (46)
  - Abdominal cavity drainage [Recovering/Resolving]
  - Obstruction gastric [Recovering/Resolving]
  - Pericardiotomy [Recovering/Resolving]
  - Drug hypersensitivity [Unknown]
  - Adjustment disorder with anxiety [Unknown]
  - Osteoarthritis [Unknown]
  - Occipital neuralgia [Not Recovered/Not Resolved]
  - Adenocarcinoma pancreas [Unknown]
  - Post procedural haematoma [Recovering/Resolving]
  - Sepsis [Recovering/Resolving]
  - Hypotension [Recovering/Resolving]
  - Cardiotoxicity [Recovering/Resolving]
  - Acute kidney injury [Recovered/Resolved]
  - Sleep apnoea syndrome [Unknown]
  - Cough [Not Recovered/Not Resolved]
  - Road traffic accident [Unknown]
  - Pancreaticoduodenectomy [Unknown]
  - Cardiac tamponade [Recovering/Resolving]
  - Cardiomyopathy [Unknown]
  - Gastrooesophageal reflux disease [Unknown]
  - Constipation [Not Recovered/Not Resolved]
  - Sinus tachycardia [Recovering/Resolving]
  - Cholecystectomy [Unknown]
  - Pericardial effusion [Recovering/Resolving]
  - Spinal cord compression [Unknown]
  - Atrial fibrillation [Unknown]
  - Stress [Unknown]
  - Abdominal pain upper [Unknown]
  - Biopsy liver [Unknown]
  - Hiatus hernia [Unknown]
  - Haemorrhoids [Unknown]
  - Craniocerebral injury [Unknown]
  - Parotid gland enlargement [Unknown]
  - Pleural effusion [Recovering/Resolving]
  - Chronic obstructive pulmonary disease [Unknown]
  - Pseudomonas infection [Recovering/Resolving]
  - Systemic inflammatory response syndrome [Recovering/Resolving]
  - Nerve block [Recovering/Resolving]
  - Diverticulum intestinal [Unknown]
  - Temporomandibular joint syndrome [Unknown]
  - Treatment noncompliance [Unknown]
  - Mesenteric panniculitis [Recovering/Resolving]
  - Mesenteric panniculitis [Recovering/Resolving]
  - Acute kidney injury [Recovering/Resolving]
  - Pancreatitis [Unknown]
  - Hypertension [Unknown]

NARRATIVE: CASE EVENT DATE: 201012
